FAERS Safety Report 6113640-9 (Version None)
Quarter: 2009Q1

REPORT INFORMATION
  Report Type: 
  Country: None (occurrence: None)
  Receive Date: 20090312
  Receipt Date: 20090302
  Transmission Date: 20090719
  Serious: Yes (Hospitalization, Other)
  Sender: FDA-Public Use
  Company Number: GB-JNJFOC-20090300846

PATIENT
  Age: 44 Year
  Sex: Male
  Weight: 163.5 kg

DRUGS (24)
  1. PARACETAMOL [Suspect]
     Route: 048
  2. PARACETAMOL [Suspect]
     Indication: MUSCLE SPASMS
     Route: 048
  3. ACOMPLIA [Suspect]
     Indication: OBESITY
     Route: 048
  4. CARACE [Suspect]
     Indication: DRUG USE FOR UNKNOWN INDICATION
  5. CODEINE [Suspect]
     Indication: MUSCLE SPASMS
  6. IRBESARTAN [Suspect]
     Indication: DRUG USE FOR UNKNOWN INDICATION
  7. SPIRONOLACTONE [Suspect]
     Indication: DRUG USE FOR UNKNOWN INDICATION
  8. ASPIRIN [Concomitant]
     Indication: CARDIAC DISORDER
  9. ATENOLOL [Concomitant]
     Dosage: 50 MG, 1 IN ^1 MONTH^
  10. ATORVASTATIN [Concomitant]
  11. BISOPROLOL [Concomitant]
  12. DILTIAZEM HYDROCHLORIDE [Concomitant]
  13. FUROSEMIDE [Concomitant]
  14. ISOSORBIDE MONONITRATE [Concomitant]
  15. ISPAGHULA [Concomitant]
  16. LIDOCAINE [Concomitant]
  17. NITRAZEPAM [Concomitant]
  18. NITROGLYCERIN [Concomitant]
     Indication: CARDIAC DISORDER
  19. OMACOR [Concomitant]
     Route: 048
  20. OMEPRAZOLE [Concomitant]
  21. QUININE SULPHATE [Concomitant]
  22. SOLIFENACIN SUCCINATE [Concomitant]
  23. TRIMETHOPRIM [Concomitant]
  24. VESICARE [Concomitant]
     Indication: BLADDER DISORDER

REACTIONS (14)
  - ATRIAL FIBRILLATION [None]
  - CONSTIPATION [None]
  - DYSPEPSIA [None]
  - FEAR OF EATING [None]
  - GASTROOESOPHAGEAL REFLUX DISEASE [None]
  - HAEMORRHOIDS [None]
  - HYPERTENSION [None]
  - NAUSEA [None]
  - PYREXIA [None]
  - RECTAL HAEMORRHAGE [None]
  - RENAL FAILURE [None]
  - RENAL PAIN [None]
  - VOMITING [None]
  - WEIGHT INCREASED [None]
